FAERS Safety Report 6019255-5 (Version None)
Quarter: 2008Q4

REPORT INFORMATION
  Report Type: 
  Country: None (occurrence: None)
  Receive Date: 20081224
  Receipt Date: 20081216
  Transmission Date: 20090506
  Serious: Yes (Hospitalization)
  Sender: FDA-Public Use
  Company Number: AT-PFIZER INC-2008090913

PATIENT
  Age: 70 Year
  Sex: Female

DRUGS (9)
  1. HALCION [Suspect]
     Dosage: DAILY
     Route: 048
  2. AMLODIPINE BESYLATE [Suspect]
     Dosage: DAILY
     Route: 048
  3. RISPERDAL [Suspect]
     Dosage: DAILY
     Route: 048
     Dates: start: 20060601
  4. PAROXETINE HCL [Concomitant]
     Dosage: DAILY
     Dates: start: 20060601
  5. OXAZEPAM [Concomitant]
     Dosage: DAILY
     Dates: start: 20060601
  6. OXAZEPAM [Concomitant]
     Dosage: DAILY
  7. FOLSAN [Concomitant]
     Dosage: DAILY
  8. ASPIRIN [Concomitant]
     Dosage: DAILY
  9. THIAMINE HCL [Concomitant]

REACTIONS (2)
  - DEEP VEIN THROMBOSIS [None]
  - PULMONARY EMBOLISM [None]
